FAERS Safety Report 10328164 (Version 1)
Quarter: 2014Q3

REPORT INFORMATION
  Report Type: Report from Study
  Country: BR (occurrence: BR)
  Receive Date: 20140721
  Receipt Date: 20140721
  Transmission Date: 20150326
  Serious: Yes (Death, Other)
  Sender: FDA-Public Use
  Company Number: PHHY2014BR087762

PATIENT
  Age: 37 Year
  Sex: Male
  Weight: 51 kg

DRUGS (5)
  1. SANDOSTATIN LAR DEPOT [Suspect]
     Active Substance: OCTREOTIDE ACETATE
     Indication: CARCINOID TUMOUR OF THE PANCREAS
     Dosage: 20 MG, QMO
     Route: 030
     Dates: start: 201402
  2. SANDOSTATIN LAR DEPOT [Suspect]
     Active Substance: OCTREOTIDE ACETATE
     Dosage: 30 MG, QMO
     Route: 030
     Dates: start: 20140523
  3. DIAZEPAM. [Concomitant]
     Active Substance: DIAZEPAM
     Indication: CONVULSION
  4. DIAZEPAM. [Concomitant]
     Active Substance: DIAZEPAM
     Indication: SLEEP DISORDER
     Dosage: 2 DF (10 MG), ONE IN THE MIDDLE OF THE DAY OTHER AT NIGHT
     Dates: start: 201003
  5. CARBAMAZEPINE. [Concomitant]
     Active Substance: CARBAMAZEPINE
     Indication: CONVULSION
     Dosage: 2 DF (200 MG), ONE IN THE MIDDLE OF THE DAY AND OTHER AT NIGHT
     Dates: start: 201003

REACTIONS (3)
  - Asthenia [Unknown]
  - Multi-organ failure [Fatal]
  - Weight decreased [Unknown]

NARRATIVE: CASE EVENT DATE: 20140525
